FAERS Safety Report 9086550 (Version 1)
Quarter: 2013Q1

REPORT INFORMATION
  Report Type: Report from Study
  Country: US (occurrence: US)
  Receive Date: 20130131
  Receipt Date: 20130131
  Transmission Date: 20140127
  Serious: No
  Sender: FDA-Public Use
  Company Number: US-ABBOTT-12P-163-0989582-00

PATIENT
  Age: 33 None
  Sex: Female

DRUGS (3)
  1. HUMIRA [Suspect]
     Dosage: DAY 1
     Route: 058
     Dates: start: 20120919, end: 20120919
  2. HUMIRA [Suspect]
     Dosage: DAY 15
     Route: 058
  3. HUMIRA [Suspect]
     Route: 058

REACTIONS (18)
  - Dry skin [Unknown]
  - Injection site bruising [Unknown]
  - Myalgia [Unknown]
  - Myalgia [Unknown]
  - Pruritus [Unknown]
  - Cough [Unknown]
  - Rhinorrhoea [Unknown]
  - Asthma [Unknown]
  - Malaise [Not Recovered/Not Resolved]
  - Somnolence [Not Recovered/Not Resolved]
  - Fatigue [Unknown]
  - Feeling abnormal [Not Recovered/Not Resolved]
  - Muscular weakness [Not Recovered/Not Resolved]
  - Injection site pain [Unknown]
  - Injection site bruising [Unknown]
  - Injection site erythema [Unknown]
  - Injection site papule [Unknown]
  - Injection site pruritus [Unknown]
